FAERS Safety Report 5209078-9 (Version None)
Quarter: 2006Q4

REPORT INFORMATION
  Report Type: 
  Country: None (occurrence: None)
  Receive Date: 20061226
  Receipt Date: 20061212
  Transmission Date: 20070319
  Serious: Yes (Life-Threatening, Hospitalization)
  Sender: FDA-Public Use
  Company Number: 200610418BBE

PATIENT
  Age: 52 Year
  Sex: Male
  Weight: 64 kg

DRUGS (11)
  1. IMMUNE GLOBULIN INTRAVENOUS (HUMAN) [Suspect]
     Dosage: SEE IMAGE
     Route: 042
     Dates: start: 20061009
  2. IMMUNE GLOBULIN INTRAVENOUS (HUMAN) [Suspect]
     Dosage: SEE IMAGE
     Route: 042
     Dates: start: 20061012
  3. IMMUNE GLOBULIN INTRAVENOUS (HUMAN) [Suspect]
     Dosage: SEE IMAGE
     Route: 042
     Dates: start: 20061015
  4. IMMUNE GLOBULIN INTRAVENOUS (HUMAN) [Suspect]
     Dosage: SEE IMAGE
     Route: 042
     Dates: start: 20061016
  5. IMMUNE GLOBULIN INTRAVENOUS (HUMAN) [Suspect]
  6. CEFUROXIME [Concomitant]
  7. NEXIUM [Concomitant]
  8. COLACE [Concomitant]
  9. DILANTIN [Concomitant]
  10. PREDNISONE [Concomitant]
  11. NYSTANTIN [Concomitant]

REACTIONS (3)
  - HYPERSENSITIVITY [None]
  - INCREASED UPPER AIRWAY SECRETION [None]
  - OXYGEN SATURATION DECREASED [None]
